FAERS Safety Report 5745669-4 (Version None)
Quarter: 2008Q2

REPORT INFORMATION
  Report Type: 
  Country: None (occurrence: None)
  Receive Date: 20080521
  Receipt Date: 20080519
  Transmission Date: 20081010
  Serious: Yes (Hospitalization)
  Sender: FDA-Public Use
  Company Number: US-BOEHRINGER INGELHEIM GMBH, GERMANY-2008-BP-07831RO

PATIENT
  Age: 75 Year
  Sex: Male

DRUGS (4)
  1. LITHIUM CARBONATE [Suspect]
     Indication: BIPOLAR I DISORDER
  2. RISPERIDONE [Suspect]
     Indication: BIPOLAR I DISORDER
  3. SEROQUEL [Concomitant]
     Indication: BIPOLAR I DISORDER
  4. CARBAMAZEPINE [Concomitant]
     Indication: BIPOLAR I DISORDER

REACTIONS (1)
  - ENCEPHALOPATHY [None]
